FAERS Safety Report 14832321 (Version 4)
Quarter: 2018Q2

REPORT INFORMATION
  Report Type: Spontaneous
  Country: US (occurrence: US)
  Receive Date: 20180501
  Receipt Date: 20180608
  Transmission Date: 20180711
  Serious: Yes (Other)
  Sender: FDA-Public Use
  Company Number: US-UNITED THERAPEUTICS-UNT-2018-005887

PATIENT
  Sex: Male

DRUGS (3)
  1. REMODULIN [Suspect]
     Active Substance: TREPROSTINIL
     Indication: PULMONARY ARTERIAL HYPERTENSION
     Dosage: 0.045 ?G/KG, CONTINUING, INFUSION RATE 0.02 ML/HR TO 0.018 ML/HR
     Route: 058
     Dates: start: 20170419
  2. REMODULIN [Suspect]
     Active Substance: TREPROSTINIL
     Dosage: 0.0395 ?G/KG, CONTINUING
     Route: 058
     Dates: start: 20170420
  3. REMODULIN [Suspect]
     Active Substance: TREPROSTINIL
     Dosage: 0.0395 ?G/KG-0.0415 ?G/KG, CONTINUING
     Route: 058
     Dates: start: 20180424

REACTIONS (7)
  - Wrist fracture [Unknown]
  - Fall [Recovered/Resolved with Sequelae]
  - Depression [Unknown]
  - Infusion site abscess [Recovered/Resolved]
  - Gout [Unknown]
  - Pain in extremity [Not Recovered/Not Resolved]
  - Anxiety [Unknown]

NARRATIVE: CASE EVENT DATE: 201805
